FAERS Safety Report 5300785-6 (Version None)
Quarter: 2007Q2

REPORT INFORMATION
  Report Type: 
  Country: None (occurrence: None)
  Receive Date: 20070418
  Receipt Date: 20060721
  Transmission Date: 20071010
  Serious: Yes (Hospitalization)
  Sender: FDA-Public Use
  Company Number: 2006AP03392

PATIENT
  Age: 23115 Day
  Sex: Male
  Weight: 70 kg

DRUGS (8)
  1. ZOLADEX [Suspect]
     Indication: PROSTATE CANCER
     Route: 058
     Dates: start: 20060523, end: 20060620
  2. COMBIVIR [Concomitant]
     Indication: HIV INFECTION
     Dates: start: 19990101
  3. NEVIRAPINE [Concomitant]
     Indication: HIV INFECTION
     Dates: start: 19990101
  4. AROPAX [Concomitant]
     Indication: DEPRESSION
  5. COSUDEX [Concomitant]
     Indication: PROSTATE CANCER
     Route: 048
     Dates: start: 20060502
  6. INDOMETHACIN [Concomitant]
     Indication: PAIN
     Dates: start: 19980101
  7. SERETIDE [Concomitant]
     Indication: ASTHMA
     Route: 055
  8. VENTOLIN [Concomitant]
     Indication: ASTHMA
     Route: 055

REACTIONS (1)
  - MAJOR DEPRESSION [None]
